FAERS Safety Report 4783574-0 (Version None)
Quarter: 2005Q3

REPORT INFORMATION
  Report Type: 
  Country: None (occurrence: None)
  Receive Date: 20050929
  Receipt Date: 20050922
  Transmission Date: 20060218
  Serious: Yes (Life-Threatening)
  Sender: FDA-Public Use
  Company Number: US-JNJFOC-20050905751

PATIENT
  Age: 38 Year
  Sex: Female

DRUGS (4)
  1. TYLENOL (CAPLET) [Suspect]
  2. TYLENOL (CAPLET) [Suspect]
     Indication: HEADACHE
  3. LEXAPRO [Suspect]
     Indication: DEPRESSION
     Route: 048
  4. KLONOPIN [Concomitant]

REACTIONS (1)
  - ANAPHYLACTIC REACTION [None]
